FAERS Safety Report 8717264 (Version 3)
Quarter: 2012Q4

REPORT INFORMATION
  Report Type: 
  Country: FR (occurrence: FR)
  Receive Date: 20120810
  Receipt Date: 20121017
  Transmission Date: 20130627
  Serious: Yes (Hospitalization)
  Sender: FDA-Public Use
  Company Number: FR-PFIZER INC-2012190203

PATIENT
  Age: 73 Year
  Sex: Male

DRUGS (15)
  1. TAZOCILLINE [Suspect]
     Dosage: 4 g, 3x/day
     Route: 042
     Dates: start: 20120709, end: 20120713
  2. ATENOLOL [Suspect]
     Dosage: 100 mg, 1x/day
     Route: 048
     Dates: start: 20120707, end: 20120711
  3. INIPOMP [Suspect]
     Dosage: 40 mg ,daily
     Route: 048
     Dates: start: 20120707, end: 20120711
  4. DOLIPRANE [Suspect]
     Dosage: 1 g, 1x/day
     Route: 048
     Dates: start: 20120711, end: 20120717
  5. TIENAM [Suspect]
     Dosage: 500 mg, 3x/day
     Route: 042
     Dates: start: 20120704, end: 20120707
  6. CIFLOX [Suspect]
     Dosage: 1 g, daily
     Route: 042
     Dates: start: 20120713, end: 20120723
  7. PLAVIX [Suspect]
     Dosage: 75 mg ,daily
     Route: 048
     Dates: start: 20120707, end: 20120723
  8. ACUPAN [Suspect]
     Dosage: 20 mg, daily
     Route: 042
     Dates: start: 20120714, end: 20120724
  9. OFLOCET [Suspect]
     Dosage: 200 mEq,BID
     Route: 042
     Dates: start: 20120709, end: 20120711
  10. LASILIX [Concomitant]
     Dosage: UNK
     Route: 065
  11. CORDARONE [Concomitant]
     Dosage: UNK
     Route: 065
     Dates: start: 20120707
  12. LOVENOX [Concomitant]
     Dosage: UNK
     Route: 065
     Dates: start: 20120707
  13. JOSIR [Concomitant]
     Dosage: UNK
  14. NICOBION [Concomitant]
     Dosage: UNK
     Route: 065
     Dates: start: 20120711
  15. NOVORAPID [Concomitant]
     Dosage: UNK
     Route: 058
     Dates: start: 20120711

REACTIONS (2)
  - Leukocytoclastic vasculitis [Recovered/Resolved]
  - Anaemia [None]
